FAERS Safety Report 9805556 (Version 2)
Quarter: 2014Q1

REPORT INFORMATION
  Report Type: Spontaneous
  Country: IT (occurrence: IT)
  Receive Date: 20140109
  Receipt Date: 20140122
  Transmission Date: 20141002
  Serious: No
  Sender: FDA-Public Use
  Company Number: IT-ELI_LILLY_AND_COMPANY-IT201312009153

PATIENT
  Age: 34 Year
  Sex: Female
  Weight: 76 kg

DRUGS (2)
  1. ZYPADHERA [Suspect]
     Indication: DISSOCIATIVE DISORDER
     Dosage: 300 MG, MONTHLY (1/M)
     Route: 030
     Dates: start: 20100101, end: 20130701
  2. SERENASE /00027401/ [Suspect]
     Indication: DISSOCIATIVE DISORDER
     Dosage: 5 MG, QD
     Dates: start: 20100101, end: 20130701

REACTIONS (5)
  - Metrorrhagia [Recovering/Resolving]
  - Weight increased [Recovering/Resolving]
  - Extrapyramidal disorder [Recovering/Resolving]
  - Blood prolactin increased [Unknown]
  - Off label use [Recovered/Resolved]
